FAERS Safety Report 18998554 (Version 1)
Quarter: 2021Q1

REPORT INFORMATION
  Report Type: Other
  Country: DE (occurrence: DE)
  Receive Date: 20210312
  Receipt Date: 20210312
  Transmission Date: 20210420
  Serious: Yes (Hospitalization)
  Sender: FDA-Public Use
  Company Number: DE-ASTELLAS-2021US008310

PATIENT
  Age: 23 Month
  Sex: Male

DRUGS (6)
  1. L?ARGININE [ARGININE] [Concomitant]
     Active Substance: ARGININE
     Indication: LIVER TRANSPLANT
     Dosage: 1500 MG, DAILY (EVERY DAYS 3 SEPARATED DOSES) (THRICE DAILY)
     Route: 048
     Dates: start: 201708
  2. URSOFALK [Concomitant]
     Active Substance: URSODIOL
     Indication: LIVER TRANSPLANT
     Dosage: 160 MG, DAILY (EVERY DAYS 2 SEPARATED DOSES) (TWICE DAILY)
     Route: 048
     Dates: start: 201712
  3. MODIGRAF [Suspect]
     Active Substance: TACROLIMUS
     Dosage: 0.4 MG, UNKNOWN FREQ. (2 X 0.2 MG)
     Route: 048
  4. VALCYTE [Concomitant]
     Active Substance: VALGANCICLOVIR HYDROCHLORIDE
     Indication: CHRONIC ACTIVE EPSTEIN-BARR VIRUS INFECTION
     Route: 048
     Dates: start: 201712
  5. MODIGRAF [Suspect]
     Active Substance: TACROLIMUS
     Indication: LIVER TRANSPLANT
     Dosage: 0.6 MG, DAILY (EVERY DAYS 2 SEPARATED DOSES) (TWICE DAILY)
     Route: 048
     Dates: start: 201906, end: 20190724
  6. CITRULLINE [Concomitant]
     Active Substance: CITRULLINE
     Indication: LIVER TRANSPLANT
     Dosage: 1800 MG, DAILY (EVERY DAYS 3 SEPARATED DOSES) (THRICE DAILY)
     Route: 048
     Dates: start: 201708

REACTIONS (6)
  - Vomiting [Recovered/Resolved]
  - Frequent bowel movements [Recovered/Resolved]
  - Gastroenteritis [Recovered/Resolved]
  - Hypotonia [Recovered/Resolved]
  - Listless [Unknown]
  - Dehydration [Recovered/Resolved]

NARRATIVE: CASE EVENT DATE: 20190724
